FAERS Safety Report 9352976 (Version 1)
Quarter: 2013Q2

REPORT INFORMATION
  Report Type: Spontaneous
  Country: US (occurrence: US)
  Receive Date: 20130618
  Receipt Date: 20130618
  Transmission Date: 20140414
  Serious: Yes (Other)
  Sender: FDA-Public Use
  Company Number: US-SANOFI-AVENTIS-2013SA059341

PATIENT
  Age: 64 Year
  Sex: Female

DRUGS (3)
  1. LANTUS SOLOSTAR [Suspect]
     Indication: TYPE 2 DIABETES MELLITUS
  2. LANTUS SOLOSTAR [Suspect]
     Indication: TYPE 2 DIABETES MELLITUS
     Dosage: DOSE:30 UNIT(S)
  3. SOLOSTAR [Suspect]
     Indication: TYPE 2 DIABETES MELLITUS

REACTIONS (10)
  - Diabetic neuropathy [Unknown]
  - Sensory loss [Unknown]
  - Hernia [Unknown]
  - Pain [Unknown]
  - Fibromyalgia [Unknown]
  - Fall [Unknown]
  - Weight decreased [Unknown]
  - Fatigue [Unknown]
  - Injection site bruising [Unknown]
  - Blood glucose increased [Not Recovered/Not Resolved]
